FAERS Safety Report 20948371 (Version 1)
Quarter: 2022Q2

REPORT INFORMATION
  Report Type: Report from Study
  Country: IT (occurrence: IT)
  Receive Date: 20220611
  Receipt Date: 20220611
  Transmission Date: 20220721
  Serious: Yes (Other)
  Sender: FDA-Public Use
  Company Number: None

PATIENT
  Age: 89 Year
  Sex: Female

DRUGS (9)
  1. RAMIPRIL [Suspect]
     Active Substance: RAMIPRIL
     Indication: Hypertension
     Dosage: UNIT DOSE: 10 MG, FREQUENCY : 1 DAYS
     Dates: start: 20220101, end: 20220429
  2. LASIX [Suspect]
     Active Substance: FUROSEMIDE
     Indication: Hypertension
     Dosage: LASIX 25 MG ,UNIT DOSE: 1 DF,FREQUENCY : 1 DAYS
     Route: 048
     Dates: start: 20220101, end: 20220429
  3. ATORVASTATIN [Concomitant]
     Active Substance: ATORVASTATIN
     Dosage: UNIT DOSE: 20 MG
  4. LANSOPRAZOLE [Concomitant]
     Active Substance: LANSOPRAZOLE
     Dosage: UNIT DOSE: 15 MG
  5. LATAY [Concomitant]
     Route: 047
  6. ASPIRIN [Concomitant]
     Active Substance: ASPIRIN
  7. BISOPROLOL [Concomitant]
     Active Substance: BISOPROLOL
     Dosage: UNIT DOSE: 7.5 MG
  8. METFORMIN HYDROCHLORIDE [Concomitant]
     Active Substance: METFORMIN HYDROCHLORIDE
     Dosage: SLOWMET 750 MG EXTENDED RELEASE TABLETS
  9. IVABRADINE [Concomitant]
     Active Substance: IVABRADINE
     Dosage: UNIT DOSE: 10 MG

REACTIONS (2)
  - Presyncope [Recovering/Resolving]
  - Orthostatic hypotension [Recovering/Resolving]

NARRATIVE: CASE EVENT DATE: 20220429
